FAERS Safety Report 8607673-8 (Version None)
Quarter: 2012Q3

REPORT INFORMATION
  Report Type: 
  Country: None (occurrence: None)
  Receive Date: 20120821
  Receipt Date: 20120801
  Transmission Date: 20120928
  Serious: No
  Sender: FDA-Public Use
  Company Number: US-JNJFOC-20120703057

PATIENT
  Sex: Male
  Weight: 141.98 kg

DRUGS (3)
  1. DEPAKOTE [Concomitant]
     Indication: BIPOLAR DISORDER
     Route: 065
     Dates: start: 20120328
  2. INVEGA SUSTENNA [Suspect]
     Indication: BIPOLAR DISORDER
     Route: 030
     Dates: start: 20120413
  3. ZYPREXA [Concomitant]
     Indication: BIPOLAR DISORDER
     Route: 065
     Dates: start: 20120328

REACTIONS (2)
  - INCORRECT STORAGE OF DRUG [None]
  - INAPPROPRIATE SCHEDULE OF DRUG ADMINISTRATION [None]
